FAERS Safety Report 8171981-8 (Version None)
Quarter: 2012Q1

REPORT INFORMATION
  Report Type: 
  Country: None (occurrence: None)
  Receive Date: 20120228
  Receipt Date: 20120221
  Transmission Date: 20120608
  Serious: Yes (Death, Hospitalization, Other)
  Sender: FDA-Public Use
  Company Number: AU-CELGENEUS-008-22393-12022301

PATIENT

DRUGS (10)
  1. ISTODAX [Suspect]
     Indication: MULTIPLE MYELOMA
     Dosage: 8-14 MG/M2
     Route: 041
  2. SULFAMETHOXAZOLE [Concomitant]
     Route: 065
  3. TRIMETHOPRIM [Concomitant]
     Route: 065
  4. BISPHOSPHONATES [Concomitant]
     Route: 065
  5. DEXAMETHASONE [Suspect]
     Indication: MULTIPLE MYELOMA
     Route: 048
  6. NEUPOGEN [Concomitant]
     Indication: FEBRILE NEUTROPENIA
  7. BORTEZOMIB [Suspect]
     Indication: MULTIPLE MYELOMA
     Route: 041
  8. VALACICLOVIR [Concomitant]
     Indication: ANTIVIRAL PROPHYLAXIS
     Dosage: 500 MILLIGRAM
     Route: 048
  9. NEUPOGEN [Concomitant]
     Indication: PROPHYLAXIS
     Route: 065
  10. NEUPOGEN [Concomitant]
     Indication: NEUTROPENIA

REACTIONS (26)
  - NEUTROPENIA [None]
  - INFECTION [None]
  - ALANINE AMINOTRANSFERASE INCREASED [None]
  - BLOOD CREATININE INCREASED [None]
  - PAIN [None]
  - MULTIPLE MYELOMA [None]
  - HYPOCALCAEMIA [None]
  - HYPERCALCAEMIA [None]
  - FEBRILE NEUTROPENIA [None]
  - ANAEMIA [None]
  - NEUROPATHY PERIPHERAL [None]
  - PERIPHERAL SENSORY NEUROPATHY [None]
  - HYPERKALAEMIA [None]
  - ATRIAL FLUTTER [None]
  - DIARRHOEA [None]
  - VOMITING [None]
  - HYPONATRAEMIA [None]
  - THROMBOCYTOPENIA [None]
  - CONSTIPATION [None]
  - CEREBRAL HAEMORRHAGE [None]
  - INTESTINAL OBSTRUCTION [None]
  - NEUTROPENIC INFECTION [None]
  - HYPERGLYCAEMIA [None]
  - FATIGUE [None]
  - DIZZINESS [None]
  - HYPOKALAEMIA [None]
